FAERS Safety Report 19816308 (Version 2)
Quarter: 2021Q4

REPORT INFORMATION
  Report Type: Report from Study
  Country: BR (occurrence: BR)
  Receive Date: 20210909
  Receipt Date: 20211018
  Transmission Date: 20220303
  Serious: Yes (Death, Hospitalization, Other)
  Sender: FDA-Public Use
  Company Number: NVSC2021BR204751

PATIENT
  Age: 84 Year
  Sex: Female
  Weight: 72 kg

DRUGS (2)
  1. DIOVAN [Suspect]
     Active Substance: VALSARTAN
     Indication: Hypertension
     Dosage: 1 DF, QD (STARTED 2 YEARS AGO AND STOPPED A FEW WEEKS DEATH (SHE UNABLE TO INFORM EXACT DATE))
     Route: 048
  2. DIOVAN [Suspect]
     Active Substance: VALSARTAN
     Dosage: 2 DF, QD (STARTED A FEW WEEKS DEATH (SHE UNABLE TO INFORM EXACT DATE)
     Route: 048

REACTIONS (9)
  - Pulmonary sepsis [Fatal]
  - Septic shock [Fatal]
  - Coronary artery disease [Fatal]
  - Pneumonia [Fatal]
  - Renal failure [Fatal]
  - Cerebrovascular accident [Not Recovered/Not Resolved]
  - Dyspnoea [Not Recovered/Not Resolved]
  - Palpitations [Not Recovered/Not Resolved]
  - Dysuria [Not Recovered/Not Resolved]

NARRATIVE: CASE EVENT DATE: 20210601
